FAERS Safety Report 7465892-0 (Version None)
Quarter: 2011Q2

REPORT INFORMATION
  Report Type: 
  Country: None (occurrence: None)
  Receive Date: 20110509
  Receipt Date: 20100427
  Transmission Date: 20111010
  Serious: No
  Sender: FDA-Public Use
  Company Number: US-ALEXION-A201000480

PATIENT

DRUGS (5)
  1. SOLIRIS [Suspect]
     Dosage: 900 MG, Q2WKS
     Route: 042
     Dates: start: 20090101
  2. GABAPENTIN [Concomitant]
     Indication: NEUROPATHY PERIPHERAL
     Dosage: UNK
  3. MORPHINE [Concomitant]
     Dosage: UNK
     Route: 048
  4. ARANESP [Concomitant]
     Dosage: UNK
  5. SOLIRIS [Suspect]
     Indication: PAROXYSMAL NOCTURNAL HAEMOGLOBINURIA
     Dosage: 600 MG, QWKX4
     Route: 042
     Dates: start: 20090609, end: 20090601

REACTIONS (4)
  - CHEST PAIN [None]
  - NAUSEA [None]
  - FATIGUE [None]
  - HAEMOGLOBIN DECREASED [None]
